FAERS Safety Report 8536006-0 (Version None)
Quarter: 2012Q3

REPORT INFORMATION
  Report Type: 
  Country: None (occurrence: None)
  Receive Date: 20120725
  Receipt Date: 20120724
  Transmission Date: 20120928
  Serious: Yes (Death)
  Sender: FDA-Public Use
  Company Number: PHHY2012NL047876

PATIENT
  Sex: Male
  Weight: 65 kg

DRUGS (6)
  1. ZOMETA [Suspect]
     Dosage: 4 MG/100 ML, ONCE PER 28 DAYS
     Dates: start: 20120523
  2. MIDAZOLAM HCL [Concomitant]
  3. MORPHINE SULFATE [Concomitant]
  4. ZOMETA [Suspect]
     Dosage: 4 MG/100 ML, ONCE PER 28 DAYS
     Dates: start: 20120426
  5. ZOMETA [Suspect]
     Indication: LUNG CANCER METASTATIC
     Dosage: 4 MG ONCE PER 4 WEEKS
     Dates: start: 20120116
  6. ZOMETA [Suspect]
     Dosage: 4 MG/100 ML, ONCE PER 28 DAYS
     Dates: start: 20120221, end: 20120529

REACTIONS (4)
  - NEOPLASM MALIGNANT [None]
  - RESPIRATORY FAILURE [None]
  - SEDATION [None]
  - NEOPLASM PROGRESSION [None]
